FAERS Safety Report 19609718 (Version 1)
Quarter: 2021Q3

REPORT INFORMATION
  Report Type: Spontaneous
  Country: US (occurrence: US)
  Receive Date: 20210726
  Receipt Date: 20210726
  Transmission Date: 20211014
  Serious: Yes (Death)
  Sender: FDA-Public Use
  Company Number: None

PATIENT
  Age: 73 Year
  Sex: Male
  Weight: 76.3 kg

DRUGS (1)
  1. APIXABAN [Suspect]
     Active Substance: APIXABAN
     Indication: DRUG THERAPY
     Route: 048

REACTIONS (3)
  - Subdural haematoma [None]
  - Deep vein thrombosis [None]
  - Subarachnoid haemorrhage [None]

NARRATIVE: CASE EVENT DATE: 20210426
